FAERS Safety Report 9700682 (Version 2)
Quarter: 2013Q4

REPORT INFORMATION
  Report Type: Report from Study
  Country: MX (occurrence: MX)
  Receive Date: 20131121
  Receipt Date: 20131219
  Transmission Date: 20140711
  Serious: Yes (Hospitalization, Other)
  Sender: FDA-Public Use
  Company Number: PHHY2013MX132798

PATIENT
  Age: 61 Year
  Sex: Female

DRUGS (3)
  1. EXFORGE [Suspect]
     Indication: HYPERTENSION
     Dosage: 1 DF (160MG VALS/ 5 MG AMLO), DAILY
     Route: 048
     Dates: start: 201104
  2. EXFORGE [Suspect]
     Dosage: 1 DF (320MG VALS/ 5MG AMLO), DAILY
     Route: 048
  3. OMACOR [Concomitant]
     Dosage: 2 UKN, DAILY
     Dates: start: 20131112

REACTIONS (5)
  - Arterial occlusive disease [Not Recovered/Not Resolved]
  - Feeling abnormal [Not Recovered/Not Resolved]
  - Ischaemic cardiomyopathy [Not Recovered/Not Resolved]
  - Arrhythmia [Unknown]
  - Hypertension [Not Recovered/Not Resolved]
